FAERS Safety Report 17229164 (Version 1)
Quarter: 2020Q1

REPORT INFORMATION
  Report Type: Spontaneous
  Country: TW (occurrence: TW)
  Receive Date: 20200103
  Receipt Date: 20200103
  Transmission Date: 20200409
  Serious: Yes (Life-Threatening, Hospitalization, Other)
  Sender: FDA-Public Use
  Company Number: NVSC2020TW000472

PATIENT
  Age: 50 Year
  Sex: Male

DRUGS (4)
  1. METHYLPREDNISOLONE. [Suspect]
     Active Substance: METHYLPREDNISOLONE
     Indication: HYPERSENSITIVITY PNEUMONITIS
     Dosage: 40 MG, BID (9 DAYS)
     Route: 042
  2. DEXAMETHASONE. [Suspect]
     Active Substance: DEXAMETHASONE
     Indication: HYPERSENSITIVITY PNEUMONITIS
     Dosage: 4 MG, TID (18 DAYS)
     Route: 048
  3. DEXAMETHASONE. [Suspect]
     Active Substance: DEXAMETHASONE
     Dosage: 4 MG, TID (9 DAYS)
     Route: 048
  4. HYDROCORTISONE. [Suspect]
     Active Substance: HYDROCORTISONE
     Indication: HYPERSENSITIVITY PNEUMONITIS
     Dosage: 100 MG, Q8H (5 DAYS)
     Route: 042

REACTIONS (6)
  - Pneumoperitoneum [Unknown]
  - Pneumatosis intestinalis [Unknown]
  - Pneumoretroperitoneum [Unknown]
  - Abdominal distension [Unknown]
  - Product use in unapproved indication [Unknown]
  - Vomiting [Unknown]
